FAERS Safety Report 19490201 (Version 1)
Quarter: 2021Q3

REPORT INFORMATION
  Report Type: Spontaneous
  Country: US (occurrence: US)
  Receive Date: 20210705
  Receipt Date: 20210705
  Transmission Date: 20211014
  Serious: No
  Sender: FDA-Public Use
  Company Number: US-TEVA-2021-US-1922974

PATIENT
  Age: 52 Year
  Sex: Female

DRUGS (4)
  1. AJOVY [Suspect]
     Active Substance: FREMANEZUMAB-VFRM
     Dosage: 7.5 MILLIGRAM DAILY;
     Route: 065
     Dates: start: 20210528
  2. FIORICET [Concomitant]
     Active Substance: ACETAMINOPHEN\BUTALBITAL\CAFFEINE
     Route: 065
  3. UBRELVY [Concomitant]
     Active Substance: UBROGEPANT
  4. AJOVY [Suspect]
     Active Substance: FREMANEZUMAB-VFRM

REACTIONS (3)
  - Injection site erythema [Unknown]
  - Injection site urticaria [Unknown]
  - Injection site pruritus [Unknown]

NARRATIVE: CASE EVENT DATE: 2021
